FAERS Safety Report 23306075 (Version 1)
Quarter: 2023Q4

REPORT INFORMATION
  Report Type: Spontaneous
  Country: US (occurrence: US)
  Receive Date: 20231218
  Receipt Date: 20231218
  Transmission Date: 20240110
  Serious: Yes (Other)
  Sender: FDA-Public Use
  Company Number: US-BRISTOL-MYERS SQUIBB COMPANY-2023-181406

PATIENT
  Age: 70 Year
  Sex: Female
  Weight: 54.43 kg

DRUGS (3)
  1. POMALYST [Suspect]
     Active Substance: POMALIDOMIDE
     Indication: Plasma cell myeloma
     Dosage: DOSE : UNAVAILABLE;     FREQ : DAILY FOR 21 DAY, THEN 7 DAYS OFF
     Route: 048
     Dates: start: 2022
  2. POMALYST [Suspect]
     Active Substance: POMALIDOMIDE
     Dosage: DOSE : UNAVAILABLE;     FREQ : DAILY FOR 21 DAY, THEN 7 DAYS OFF
     Route: 048
  3. DARZALEX [Concomitant]
     Active Substance: DARATUMUMAB
     Indication: Product used for unknown indication
     Dosage: MONTHLY

REACTIONS (5)
  - Plasma cell myeloma [Unknown]
  - Feeling abnormal [Unknown]
  - Weight increased [Unknown]
  - Rash [Unknown]
  - Illness [Unknown]
